FAERS Safety Report 18151240 (Version 1)
Quarter: 2020Q3

REPORT INFORMATION
  Report Type: Spontaneous
  Country: US (occurrence: US)
  Receive Date: 20200814
  Receipt Date: 20200814
  Transmission Date: 20201103
  Serious: No
  Sender: FDA-Public Use
  Company Number: US-ALVOGEN-2020-ALVOGEN-113898

PATIENT
  Sex: Female

DRUGS (1)
  1. BUPRENORPHINE/NALOXONE [Suspect]
     Active Substance: BUPRENORPHINE\NALOXONE
     Indication: PRODUCT USED FOR UNKNOWN INDICATION
     Route: 060

REACTIONS (17)
  - Pruritus allergic [Unknown]
  - Dyspnoea [Unknown]
  - Headache [Unknown]
  - Vomiting [Unknown]
  - Nausea [Unknown]
  - Malaise [Unknown]
  - Pain [Unknown]
  - Skin burning sensation [Unknown]
  - Withdrawal syndrome [Unknown]
  - Chest pain [Unknown]
  - Flushing [Unknown]
  - Oropharyngeal pain [Unknown]
  - Stomatitis [Unknown]
  - Product substitution issue [Unknown]
  - Drug ineffective [Unknown]
  - Hyperhidrosis [Unknown]
  - Ear pain [Unknown]
